FAERS Safety Report 24262963 (Version 5)
Quarter: 2024Q3

REPORT INFORMATION
  Report Type: Spontaneous
  Country: US (occurrence: US)
  Receive Date: 20240829
  Receipt Date: 20240917
  Transmission Date: 20241017
  Serious: No
  Sender: PFIZER
  Company Number: US-PFIZER INC-202400243248

PATIENT
  Age: 49 Year
  Sex: Male

DRUGS (1)
  1. SOMAVERT [Suspect]
     Active Substance: PEGVISOMANT
     Dosage: UNK (OVER 15 YEARS/FOR 12 TO 15 YEARS)

REACTIONS (5)
  - Drug hypersensitivity [Unknown]
  - Procedural complication [Unknown]
  - Vitamin B12 deficiency [Unknown]
  - Blood iron decreased [Unknown]
  - Fatigue [Unknown]
